FAERS Safety Report 7928532-X (Version None)
Quarter: 2011Q4

REPORT INFORMATION
  Report Type: 
  Country: None (occurrence: None)
  Receive Date: 20111118
  Receipt Date: 20111109
  Transmission Date: 20120403
  Serious: Yes (Other)
  Sender: FDA-Public Use
  Company Number: DK-BRISTOL-MYERS SQUIBB COMPANY-16222234

PATIENT
  Age: 37 Year
  Sex: Female

DRUGS (3)
  1. LIDOCAINE [Concomitant]
     Dosage: SOLUN FOR INJ ROUTE:IART
     Route: 014
     Dates: start: 20090603
  2. KENALOG-40 [Suspect]
     Indication: TENOSYNOVITIS
     Dosage: STYRKE: 40 MG/ML SUS FOR INJ ROUTE:IART
     Route: 014
     Dates: start: 20090603
  3. ENBREL [Concomitant]
     Dates: start: 20090708

REACTIONS (2)
  - TENDON RUPTURE [None]
  - TENDONITIS [None]
